FAERS Safety Report 7569556-4 (Version None)
Quarter: 2011Q2

REPORT INFORMATION
  Report Type: 
  Country: None (occurrence: None)
  Receive Date: 20110624
  Receipt Date: 20110617
  Transmission Date: 20111010
  Serious: Yes (Life-Threatening)
  Sender: FDA-Public Use
  Company Number: US-CELGENEUS-163-21880-11062488

PATIENT
  Sex: Female

DRUGS (9)
  1. OMEPRAZOLE [Concomitant]
     Route: 065
  2. SIMVASTATIN [Concomitant]
     Route: 065
  3. CALCIUM 600 [Concomitant]
     Route: 065
  4. REVLIMID [Suspect]
     Indication: MANTLE CELL LYMPHOMA
     Dosage: 15 MILLIGRAM
     Route: 048
     Dates: start: 20110518
  5. ECHINACEA [Concomitant]
     Route: 065
  6. ZOLPIDEM TARTRATE [Concomitant]
     Route: 065
  7. LEVOTHROID [Concomitant]
     Route: 065
  8. CITALOPRAM HYDROBROMIDE [Concomitant]
     Route: 065
  9. ASCORBIC ACID [Concomitant]
     Route: 065

REACTIONS (1)
  - MANTLE CELL LYMPHOMA [None]
